FAERS Safety Report 24125905 (Version 1)
Quarter: 2024Q3

REPORT INFORMATION
  Report Type: Spontaneous
  Country: US (occurrence: US)
  Receive Date: 20240723
  Receipt Date: 20240723
  Transmission Date: 20241016
  Serious: No
  Sender: PFIZER
  Company Number: US-PFIZER INC-202400219844

PATIENT
  Sex: Male

DRUGS (1)
  1. PACLITAXEL [Suspect]
     Active Substance: PACLITAXEL
     Dosage: UNK UNK, CYCLIC

REACTIONS (3)
  - Balanoposthitis [Unknown]
  - Orchitis noninfective [Unknown]
  - Constipation [Unknown]
